FAERS Safety Report 17847548 (Version 1)
Quarter: 2020Q2

REPORT INFORMATION
  Report Type: Spontaneous
  Country: RU (occurrence: RU)
  Receive Date: 20200601
  Receipt Date: 20200601
  Transmission Date: 20200714
  Serious: Yes (Other)
  Sender: FDA-Public Use
  Company Number: RU-ASTRAZENECA-2020SE69724

PATIENT
  Age: 53 Year
  Sex: Female
  Weight: 109 kg

DRUGS (4)
  1. ARIFON RETARD [Concomitant]
  2. SYMBICORT [Interacting]
     Active Substance: BUDESONIDE\FORMOTEROL FUMARATE DIHYDRATE
     Indication: ASTHMA
     Dosage: 160 MCG + 4,5 MCG ,DAILY
     Route: 055
     Dates: start: 20200502
  3. SYMBICORT [Suspect]
     Active Substance: BUDESONIDE\FORMOTEROL FUMARATE DIHYDRATE
     Indication: ASTHMA
     Dosage: 160 MCG + 4,5 MCG,TWO TIMES A DAY
     Route: 055
     Dates: start: 202005
  4. CONCOR [Interacting]
     Active Substance: BISOPROLOL FUMARATE
     Route: 065
     Dates: start: 20200502

REACTIONS (2)
  - Drug interaction [Unknown]
  - Tachycardia [Recovered/Resolved]
